FAERS Safety Report 5399952-5 (Version None)
Quarter: 2007Q3

REPORT INFORMATION
  Report Type: 
  Country: None (occurrence: None)
  Receive Date: 20070730
  Receipt Date: 20070716
  Transmission Date: 20080115
  Serious: Yes (Hospitalization, Other)
  Sender: FDA-Public Use
  Company Number: JP-KINGPHARMUSA00001-K200700907

PATIENT

DRUGS (3)
  1. PITOCIN [Suspect]
     Dosage: 5 U, SINGLE
  2. LATEX [Suspect]
  3. BUPIVACAINE                        /00330102/ [Concomitant]

REACTIONS (6)
  - ANAPHYLACTIC REACTION [None]
  - BLOOD PRESSURE DECREASED [None]
  - CROSS SENSITIVITY REACTION [None]
  - DYSPNOEA [None]
  - FLUSHING [None]
  - PRURITUS [None]
